FAERS Safety Report 6057901-0 (Version None)
Quarter: 2009Q1

REPORT INFORMATION
  Report Type: 
  Country: None (occurrence: None)
  Receive Date: 20090126
  Receipt Date: 20090122
  Transmission Date: 20090719
  Serious: Yes (Hospitalization)
  Sender: FDA-Public Use
  Company Number: SP02224

PATIENT
  Age: 60 Year
  Sex: Male
  Weight: 80.2867 kg

DRUGS (3)
  1. MOVIPREP [Suspect]
     Indication: COLONOSCOPY
     Dosage: ORAL
     Route: 048
     Dates: start: 20090119, end: 20090120
  2. OMEPRAZOLE [Concomitant]
  3. AMITRIPTYLINE HCL [Concomitant]

REACTIONS (3)
  - ABDOMINAL PAIN [None]
  - ILEUS [None]
  - MUSCLE SPASMS [None]
